FAERS Safety Report 17705377 (Version 1)
Quarter: 2020Q2

REPORT INFORMATION
  Report Type: Spontaneous
  Country: FR (occurrence: FR)
  Receive Date: 20200424
  Receipt Date: 20200424
  Transmission Date: 20200714
  Serious: Yes (Hospitalization)
  Sender: FDA-Public Use
  Company Number: FR-ASTRAZENECA-2020SE54040

PATIENT
  Age: 79 Year
  Sex: Female

DRUGS (2)
  1. BIPROFENID [Suspect]
     Active Substance: KETOPROFEN
     Indication: PROCEDURAL PAIN
     Route: 048
     Dates: start: 20200120, end: 20200302
  2. INEXIUM [Suspect]
     Active Substance: ESOMEPRAZOLE
     Indication: PROPHYLAXIS AGAINST GASTROINTESTINAL ULCER
     Route: 048
     Dates: start: 20200120, end: 20200302

REACTIONS (3)
  - Coombs indirect test positive [Recovering/Resolving]
  - Warm type haemolytic anaemia [Recovering/Resolving]
  - Coombs direct test positive [Recovering/Resolving]

NARRATIVE: CASE EVENT DATE: 20200229
